FAERS Safety Report 5362042-1 (Version None)
Quarter: 2007Q2

REPORT INFORMATION
  Report Type: 
  Country: None (occurrence: None)
  Receive Date: 20070615
  Receipt Date: 20070615
  Transmission Date: 20071010
  Serious: Yes (Life-Threatening)
  Sender: FDA-Public Use
  Company Number: None

PATIENT
  Age: 76 Year
  Sex: Male
  Weight: 81.6475 kg

DRUGS (1)
  1. OMNISCAN [Suspect]
     Dosage: 29MG ONCE IV DRIP
     Route: 041

REACTIONS (1)
  - SWOLLEN TONGUE [None]
